FAERS Safety Report 12878496 (Version 1)
Quarter: 2016Q4

REPORT INFORMATION
  Report Type: Spontaneous
  Country: US (occurrence: US)
  Receive Date: 20161024
  Receipt Date: 20161024
  Transmission Date: 20170207
  Serious: Yes (Other)
  Sender: FDA-Public Use
  Company Number: US-TEVA-706604USA

PATIENT
  Sex: Female

DRUGS (1)
  1. FENTANYL. [Suspect]
     Active Substance: FENTANYL
     Route: 062

REACTIONS (12)
  - Withdrawal syndrome [Unknown]
  - Incorrect drug administration duration [Unknown]
  - Cardiac failure [Unknown]
  - Blood glucose increased [Unknown]
  - Nasopharyngitis [Unknown]
  - Burning sensation [Unknown]
  - Myalgia [Unknown]
  - Drug dose titration not performed [Unknown]
  - Yawning [Unknown]
  - Insomnia [Unknown]
  - Chills [Unknown]
  - Malaise [Unknown]

NARRATIVE: CASE EVENT DATE: 2016
